FAERS Safety Report 9602898 (Version 1)
Quarter: 2013Q4

REPORT INFORMATION
  Report Type: Spontaneous
  Country: US (occurrence: None)
  Receive Date: 20131003
  Receipt Date: 20131003
  Transmission Date: 20140711
  Serious: Yes (Other)
  Sender: FDA-Public Use
  Company Number: ACO_38686_2013

PATIENT
  Age: 37 Year
  Sex: Female
  Weight: 90.7 kg

DRUGS (5)
  1. AMPYRA [Suspect]
     Indication: GAIT DISTURBANCE
     Route: 048
     Dates: start: 20130903, end: 20130904
  2. PHENERGAN (PROMETHAZINE HYDROCHLORIDE) [Concomitant]
  3. DILAUDID (HYDROMORPHONE HYDROCHLORIDE) [Concomitant]
  4. OXYCONTIN (OXYCODONE HYDROCHLORIDE) [Concomitant]
  5. NORTRIPTYLINE HCL (NORTRIPTYLINE  HYDROCHLORIDE) [Concomitant]

REACTIONS (4)
  - Oedema peripheral [None]
  - Contusion [None]
  - Pain in extremity [None]
  - Hypersensitivity [None]
